FAERS Safety Report 24703899 (Version 2)
Quarter: 2024Q4

REPORT INFORMATION
  Report Type: Spontaneous
  Country: JP (occurrence: JP)
  Receive Date: 20241206
  Receipt Date: 20241211
  Transmission Date: 20250115
  Serious: Yes (Death, Hospitalization, Other)
  Sender: SANOFI AVENTIS
  Company Number: JP-DialogSolutions-SAAVPROD-PI699657-C1

PATIENT
  Age: 69 Year
  Sex: Male

DRUGS (3)
  1. CABAZITAXEL [Suspect]
     Active Substance: CABAZITAXEL
     Indication: Metastases to bone
     Dosage: 25 MG/M2 (2 COURSES)
     Route: 042
  2. PEMBROLIZUMAB [Suspect]
     Active Substance: PEMBROLIZUMAB
     Indication: Prostate cancer metastatic
     Dosage: 200 MG (7 COURSES)
     Route: 042
  3. PEMBROLIZUMAB [Suspect]
     Active Substance: PEMBROLIZUMAB
     Indication: Metastases to bone

REACTIONS (13)
  - Myocarditis [Fatal]
  - Chest pain [Fatal]
  - Vomiting [Fatal]
  - Pyrexia [Fatal]
  - Ventricular hypokinesia [Fatal]
  - Tissue infiltration [Fatal]
  - Endocardial fibrosis [Fatal]
  - Atrial fibrillation [Fatal]
  - Cardiac failure [Fatal]
  - Atrioventricular block complete [Fatal]
  - Arrhythmic storm [Fatal]
  - Cardiogenic shock [Fatal]
  - Multiple organ dysfunction syndrome [Fatal]
